FAERS Safety Report 10515417 (Version 1)
Quarter: 2014Q4

REPORT INFORMATION
  Report Type: Spontaneous
  Country: US (occurrence: None)
  Receive Date: 20141009
  Receipt Date: 20141009
  Transmission Date: 20150528
  Serious: Yes (Other)
  Sender: FDA-Public Use
  Company Number: IPC201409-000508

PATIENT
  Age: 49 Year
  Sex: Female

DRUGS (3)
  1. LEVOTHYROXINE (LEVOTHYROXINE) (LEVOTHYROXINE) [Suspect]
     Active Substance: LEVOTHYROXINE
  2. HYDROCHLOROTHIAZIDE (HYDROCHLOROTHIAZIDE) (HYDROCHLOROTHIAZIDE) [Suspect]
     Active Substance: HYDROCHLOROTHIAZIDE
  3. LISINOPRIL (LISINOPRIL) (LISINOPRIL) [Suspect]
     Active Substance: LISINOPRIL
     Indication: HYPERTENSION

REACTIONS (2)
  - Gastrointestinal disorder [None]
  - Angioedema [None]
